FAERS Safety Report 21723566 (Version 1)
Quarter: 2022Q4

REPORT INFORMATION
  Report Type: Spontaneous
  Country: US (occurrence: US)
  Receive Date: 20221213
  Receipt Date: 20221213
  Transmission Date: 20230112
  Serious: No
  Sender: FDA-Public Use
  Company Number: US-MYLANLABS-2022M1135317

PATIENT

DRUGS (1)
  1. EMSAM [Suspect]
     Active Substance: SELEGILINE
     Indication: Product used for unknown indication
     Dosage: UNK
     Route: 062

REACTIONS (2)
  - Drug screen positive [Unknown]
  - Back pain [Unknown]
